FAERS Safety Report 6475171-6 (Version None)
Quarter: 2009Q4

REPORT INFORMATION
  Report Type: 
  Country: None (occurrence: None)
  Receive Date: 20091204
  Receipt Date: 20090327
  Transmission Date: 20100525
  Serious: Yes (Hospitalization)
  Sender: FDA-Public Use
  Company Number: FR-ELI_LILLY_AND_COMPANY-FR200903006944

PATIENT
  Sex: Male
  Weight: 65 kg

DRUGS (1)
  1. ZYPREXA [Suspect]
     Indication: SCHIZOPHRENIA
     Dosage: 10 MG, DAILY (1/D)
     Route: 048
     Dates: start: 20080901, end: 20090120

REACTIONS (3)
  - EOSINOPHILIA [None]
  - PERICARDIAL EFFUSION [None]
  - PLEURISY [None]
